FAERS Safety Report 7301509-3 (Version None)
Quarter: 2011Q1

REPORT INFORMATION
  Report Type: 
  Country: None (occurrence: None)
  Receive Date: 20110218
  Receipt Date: 20100920
  Transmission Date: 20110831
  Serious: No
  Sender: FDA-Public Use
  Company Number: US-BRISTOL-MYERS SQUIBB COMPANY-15296429

PATIENT
  Age: 50 Year
  Sex: Female

DRUGS (2)
  1. KENALOG [Suspect]
     Dosage: 1 DF= 80 (UNITS) ALSO ON 17DEC2010
     Dates: start: 20091208
  2. TORADOL [Suspect]
     Dosage: ALSO RECEIVED ON 17-DEC-2009 1 DF= 60 (UNITS)
     Dates: start: 20091208

REACTIONS (4)
  - INJECTION SITE HAEMATOMA [None]
  - FATIGUE [None]
  - INJECTION SITE ATROPHY [None]
  - INSOMNIA [None]
